FAERS Safety Report 8784807 (Version 2)
Quarter: 2012Q4

REPORT INFORMATION
  Report Type: 
  Country: US (occurrence: US)
  Receive Date: 20120914
  Receipt Date: 20121002
  Transmission Date: 20130627
  Serious: No
  Sender: FDA-Public Use
  Company Number: US-B.I. PHARMACEUTICALS,INC./RIDGEFIELD-2012-BP-22157BP

PATIENT
  Age: 64 Year
  Sex: Male
  Weight: 64 kg

DRUGS (7)
  1. SPIRIVA [Suspect]
     Indication: INCREASED UPPER AIRWAY SECRETION
     Dosage: 18 mcg
     Route: 055
     Dates: start: 20120901
  2. OXYBUTYNIN CLER [Concomitant]
     Indication: PROSTATOMEGALY
     Dosage: 15 mg
     Route: 048
     Dates: start: 20120301
  3. FINASTERIDE [Concomitant]
     Indication: PROSTATOMEGALY
     Dosage: 5 mg
     Dates: start: 20120209
  4. IPATROPIUM [Concomitant]
     Indication: NASAL CONGESTION
     Route: 045
     Dates: start: 201001
  5. HYDROXYZINE [Concomitant]
     Indication: SLEEP DISORDER
     Dosage: 25 mg
     Route: 048
     Dates: start: 2000
  6. CALCIUM [Concomitant]
     Indication: ROUTINE HEALTH MAINTENANCE
     Dosage: 1000 mg
     Route: 048
     Dates: start: 2002
  7. NEILMED SINUS RINSE [Concomitant]
     Indication: NASAL CONGESTION
     Route: 045

REACTIONS (3)
  - Pollakiuria [Not Recovered/Not Resolved]
  - Dysuria [Not Recovered/Not Resolved]
  - Dysuria [Unknown]
